FAERS Safety Report 10965768 (Version 1)
Quarter: 2015Q1

REPORT INFORMATION
  Report Type: Spontaneous
  Country: US (occurrence: None)
  Receive Date: 20150226
  Receipt Date: 20150226
  Transmission Date: 20150721
  Serious: Yes (Hospitalization)
  Sender: FDA-Public Use
  Company Number: TPA2009A02777

PATIENT
  Age: 35 Year
  Sex: Male
  Weight: 99.7 kg

DRUGS (5)
  1. ATIVAN [Concomitant]
     Active Substance: LORAZEPAM
  2. ULORIC [Suspect]
     Active Substance: FEBUXOSTAT
     Indication: GOUT
     Route: 048
     Dates: start: 20090822
  3. PREDNISONE. [Concomitant]
     Active Substance: PREDNISONE
  4. HUMALOG [Concomitant]
     Active Substance: INSULIN LISPRO
  5. OXYCONTIN [Concomitant]
     Active Substance: OXYCODONE HYDROCHLORIDE

REACTIONS (2)
  - Gout [None]
  - Condition aggravated [None]

NARRATIVE: CASE EVENT DATE: 20090903
